FAERS Safety Report 4978830-7 (Version None)
Quarter: 2006Q2

REPORT INFORMATION
  Report Type: 
  Country: None (occurrence: None)
  Receive Date: 20060417
  Receipt Date: 20060403
  Transmission Date: 20061013
  Serious: Yes (Death)
  Sender: FDA-Public Use
  Company Number: 2006JP000960

PATIENT
  Age: 64 Year
  Sex: Male

DRUGS (1)
  1. PROGRAF [Suspect]
     Indication: BONE MARROW TRANSPLANT

REACTIONS (1)
  - PNEUMONIA ASPERGILLUS [None]
